FAERS Safety Report 8804443 (Version 1)
Quarter: 2012Q4

REPORT INFORMATION
  Report Type: 
  Country: US (occurrence: US)
  Receive Date: 20120924
  Receipt Date: 20120924
  Transmission Date: 20130627
  Serious: Yes (Other)
  Sender: FDA-Public Use
  Company Number: US-BAYER-2012-097592

PATIENT
  Age: 27 Year
  Sex: Female
  Weight: 77.1 kg

DRUGS (3)
  1. YASMIN [Suspect]
     Indication: POLYCYSTIC OVARIES
     Dosage: UNK
     Dates: start: 20031222, end: 20040113
  2. NAPROXEN [Concomitant]
     Indication: DYSMENORRHOEA
     Dosage: UNK UNK, PRN (interpreted as as needed)
     Route: 048
     Dates: start: 2002
  3. VITAMIN C [Concomitant]
     Dosage: UNK
     Dates: start: 2001

REACTIONS (3)
  - Deep vein thrombosis [Recovering/Resolving]
  - Pain in extremity [Recovering/Resolving]
  - Anxiety [None]
